FAERS Safety Report 7229207-5 (Version None)
Quarter: 2011Q1

REPORT INFORMATION
  Report Type: 
  Country: None (occurrence: None)
  Receive Date: 20110117
  Receipt Date: 20110106
  Transmission Date: 20110831
  Serious: Yes (Death)
  Sender: FDA-Public Use
  Company Number: US-CELGENEUS-163-22393-11010525

PATIENT
  Sex: Male

DRUGS (1)
  1. ISTODAX [Suspect]
     Route: 065

REACTIONS (1)
  - DEATH [None]
